FAERS Safety Report 21328217 (Version 2)
Quarter: 2022Q3

REPORT INFORMATION
  Report Type: Spontaneous
  Country: US (occurrence: US)
  Receive Date: 20220913
  Receipt Date: 20220919
  Transmission Date: 20221027
  Serious: No
  Sender: FDA-Public Use
  Company Number: US-BAYER-2022A127368

PATIENT
  Age: 10 Year
  Sex: Female

DRUGS (2)
  1. CHILDREN CLARITIN ALLERGY [Suspect]
     Active Substance: LORATADINE
     Indication: Hypersensitivity
     Dosage: 5 ML
     Route: 048
     Dates: start: 20220910, end: 20220910
  2. CHILDREN CLARITIN ALLERGY [Suspect]
     Active Substance: LORATADINE
     Indication: Nasopharyngitis

REACTIONS (3)
  - Drug ineffective [Unknown]
  - Eye pruritus [Unknown]
  - Nasal pruritus [Unknown]

NARRATIVE: CASE EVENT DATE: 20220910
